FAERS Safety Report 19414776 (Version 2)
Quarter: 2021Q2

REPORT INFORMATION
  Report Type: Report from Study
  Country: BR (occurrence: BR)
  Receive Date: 20210615
  Receipt Date: 20210618
  Transmission Date: 20210717
  Serious: Yes (Death, Hospitalization)
  Sender: FDA-Public Use
  Company Number: BR-ROCHE-2845027

PATIENT
  Age: 48 Year
  Sex: Female
  Weight: 58 kg

DRUGS (23)
  1. METHYLPREDNISOLONE. [Concomitant]
     Active Substance: METHYLPREDNISOLONE
     Dosage: ONCE BEFORE OCRELIZUMAB INFUSION
     Route: 042
     Dates: start: 20200312, end: 20200312
  2. FEXOFENADINE [Concomitant]
     Active Substance: FEXOFENADINE HYDROCHLORIDE
     Route: 048
     Dates: start: 20200312, end: 20200312
  3. ALLEGRA [Concomitant]
     Active Substance: FEXOFENADINE HYDROCHLORIDE
     Route: 048
     Dates: start: 20190328, end: 20190328
  4. FEXOFENADINE [Concomitant]
     Active Substance: FEXOFENADINE HYDROCHLORIDE
     Route: 048
     Dates: start: 20210211, end: 20210211
  5. VENVANSE [Concomitant]
     Active Substance: LISDEXAMFETAMINE DIMESYLATE
     Indication: FATIGUE
     Route: 048
     Dates: start: 201810
  6. METHYLPREDNISOLONE. [Concomitant]
     Active Substance: METHYLPREDNISOLONE
     Dosage: ONCE BEFORE OCRELIZUMAB INFUSION
     Route: 042
     Dates: start: 20200827, end: 20200827
  7. DIPIRONE [Concomitant]
     Active Substance: METAMIZOLE SODIUM
     Indication: PREMEDICATION
     Dosage: 1 G/2 ML?ONCE BEFORE OCRELIZUMAB INFUSION
     Route: 042
     Dates: start: 20190328, end: 20190328
  8. DIPIRONE [Concomitant]
     Active Substance: METAMIZOLE SODIUM
     Dosage: 1 G/2 ML?ONCE BEFORE OCRELIZUMAB INFUSION
     Route: 042
     Dates: start: 20190411, end: 20190411
  9. ALLEGRA [Concomitant]
     Active Substance: FEXOFENADINE HYDROCHLORIDE
     Route: 048
     Dates: start: 20190411, end: 20190411
  10. METHYLPREDNISOLONE. [Concomitant]
     Active Substance: METHYLPREDNISOLONE
     Indication: PREMEDICATION
     Route: 042
     Dates: start: 20190131, end: 20190204
  11. DIPIRONE [Concomitant]
     Active Substance: METAMIZOLE SODIUM
     Dosage: 1 G/2 ML?ONCE BEFORE OCRELIZUMAB INFUSION
     Route: 042
     Dates: start: 20200827, end: 20200827
  12. BACLOFEN. [Concomitant]
     Active Substance: BACLOFEN
     Route: 048
     Dates: start: 2018, end: 201905
  13. PARACETAMOL [Concomitant]
     Active Substance: ACETAMINOPHEN
     Indication: PREMEDICATION
     Dosage: ONCE BEFORE OCRELIZUMAB INFUSION
     Route: 048
     Dates: start: 20190926, end: 20190926
  14. OCRELIZUMAB. [Suspect]
     Active Substance: OCRELIZUMAB
     Dosage: MOST RECENT DOSE ON 11/FEB/2021
     Route: 042
  15. METHYLPREDNISOLONE. [Concomitant]
     Active Substance: METHYLPREDNISOLONE
     Dosage: ONCE BEFORE OCRELIZUMAB INFUSION
     Route: 042
     Dates: start: 20190926, end: 20190926
  16. METHYLPREDNISOLONE. [Concomitant]
     Active Substance: METHYLPREDNISOLONE
     Dosage: ONCE BEFORE OCRELIZUMAB INFUSION
     Route: 042
     Dates: start: 20210211, end: 20210211
  17. DIPIRONE [Concomitant]
     Active Substance: METAMIZOLE SODIUM
     Dosage: 1 G/2 ML?ONCE BEFORE OCRELIZUMAB INFUSION
     Route: 042
     Dates: start: 20200312, end: 20200312
  18. FEXOFENADINE [Concomitant]
     Active Substance: FEXOFENADINE HYDROCHLORIDE
     Route: 048
     Dates: start: 20190926, end: 20190926
  19. OCRELIZUMAB. [Suspect]
     Active Substance: OCRELIZUMAB
     Indication: PROGRESSIVE MULTIPLE SCLEROSIS
     Route: 042
     Dates: start: 20190328
  20. METHYLPREDNISOLONE. [Concomitant]
     Active Substance: METHYLPREDNISOLONE
     Dosage: ONCE BEFORE OCRELIZUMAB INFUSION
     Route: 042
     Dates: start: 20190328, end: 20190328
  21. METHYLPREDNISOLONE. [Concomitant]
     Active Substance: METHYLPREDNISOLONE
     Dosage: ONCE BEFORE OCRELIZUMAB INFUSION
     Route: 042
     Dates: start: 20190411, end: 20190411
  22. DIPIRONE [Concomitant]
     Active Substance: METAMIZOLE SODIUM
     Dosage: 1 G/2 ML?ONCE BEFORE OCRELIZUMAB INFUSION
     Route: 042
     Dates: start: 20210211, end: 20210211
  23. FEXOFENADINE [Concomitant]
     Active Substance: FEXOFENADINE HYDROCHLORIDE
     Route: 048
     Dates: start: 20200827, end: 20200827

REACTIONS (1)
  - COVID-19 [Fatal]

NARRATIVE: CASE EVENT DATE: 20210523
